FAERS Safety Report 7013194-9 (Version None)
Quarter: 2010Q3

REPORT INFORMATION
  Report Type: 
  Country: None (occurrence: None)
  Receive Date: 20100909
  Receipt Date: 20100712
  Transmission Date: 20110219
  Serious: Yes (Other)
  Sender: FDA-Public Use
  Company Number: 2010SP038451

PATIENT
  Age: 50 Year
  Sex: Female

DRUGS (5)
  1. SAPHRIS [Suspect]
     Indication: BIPOLAR DISORDER
     Dosage: 5 MG;QD;PO
     Route: 048
     Dates: start: 20100706, end: 20100710
  2. LUNESTA (CON.) [Concomitant]
  3. PRILOSEC (CON.) [Concomitant]
  4. SYNTHROID (CON.) [Concomitant]
  5. LORATHADINE (CON.) [Concomitant]

REACTIONS (9)
  - BRUXISM [None]
  - INAPPROPRIATE SCHEDULE OF DRUG ADMINISTRATION [None]
  - INCORRECT ROUTE OF DRUG ADMINISTRATION [None]
  - RESTLESS LEGS SYNDROME [None]
  - SEDATION [None]
  - SOMNOLENCE [None]
  - SWELLING FACE [None]
  - SWOLLEN TONGUE [None]
  - UNDERDOSE [None]
